FAERS Safety Report 4319190-4 (Version None)
Quarter: 2004Q1

REPORT INFORMATION
  Report Type: 
  Country: None (occurrence: None)
  Receive Date: 20040316
  Receipt Date: 20040303
  Transmission Date: 20041129
  Serious: No
  Sender: FDA-Public Use
  Company Number: 04H-167-0252612-00

PATIENT

DRUGS (6)
  1. LEUCOVORIN CALCIUM [Suspect]
     Indication: CHEMOTHERAPY
     Dosage: 125 MG/M2, ONCE EVERY TWO WEEKS
     Route: 042
  2. IRINOTECAN [Suspect]
     Indication: CHEMOTHERAPY
     Dosage: 180 MG/M2, ONCE EVERY 2 WEEKS
     Route: 042
  3. FLUOROURACIL [Suspect]
     Route: 042
  4. ATROPINE [Concomitant]
  5. DEXAMETHASONE [Concomitant]
  6. 5-HYDROXYTRYPTAMINE TYPE 3 RECEPTOR ANAGONIST [Concomitant]

REACTIONS (2)
  - DRUG TOXICITY [None]
  - NEUTROPENIA [None]
